FAERS Safety Report 9073087 (Version 1)
Quarter: 2013Q1

REPORT INFORMATION
  Report Type: Spontaneous
  Country: US (occurrence: US)
  Receive Date: 20130129
  Receipt Date: 20130129
  Transmission Date: 20140127
  Serious: Yes (Hospitalization, Other)
  Sender: FDA-Public Use
  Company Number: US-ABBOTT-13P-163-1037908-00

PATIENT
  Age: 82 None
  Sex: Male

DRUGS (4)
  1. HUMIRA [Suspect]
     Indication: PSORIASIS
     Dosage: LOADING DOSE ONLY
     Dates: start: 20130102, end: 20130102
  2. LISINOPRIL [Concomitant]
     Indication: PRODUCT USED FOR UNKNOWN INDICATION
  3. LOVASTATIN [Concomitant]
     Indication: PRODUCT USED FOR UNKNOWN INDICATION
  4. ATENOLOL [Concomitant]
     Indication: PRODUCT USED FOR UNKNOWN INDICATION

REACTIONS (15)
  - Asthenia [Unknown]
  - Fatigue [Unknown]
  - Fatigue [Unknown]
  - Mobility decreased [Unknown]
  - Blood magnesium decreased [Unknown]
  - Troponin increased [Unknown]
  - Acute myocardial infarction [Unknown]
  - Coronary artery stenosis [Unknown]
  - Psoriasis [Unknown]
  - Psoriasis [Unknown]
  - Skin infection [Unknown]
  - Dehydration [Unknown]
  - Condition aggravated [Unknown]
  - Coronary artery disease [Not Recovered/Not Resolved]
  - Erythema [Unknown]
